FAERS Safety Report 14574107 (Version 1)
Quarter: 2018Q1

REPORT INFORMATION
  Report Type: Spontaneous
  Country: JP (occurrence: JP)
  Receive Date: 20180226
  Receipt Date: 20180226
  Transmission Date: 20180509
  Serious: Yes (Hospitalization, Other)
  Sender: FDA-Public Use
  Company Number: JP-MYLANLABS-2018M1012806

PATIENT
  Age: 50 Year
  Sex: Female

DRUGS (1)
  1. MESALAZINE TABLETS 400MG [PFIZER] [Suspect]
     Active Substance: MESALAMINE
     Indication: PRODUCT USED FOR UNKNOWN INDICATION
     Route: 048

REACTIONS (4)
  - Colitis ulcerative [Unknown]
  - Melaena [Unknown]
  - Product substitution issue [Unknown]
  - Medication residue present [Unknown]

NARRATIVE: CASE EVENT DATE: 201801
